FAERS Safety Report 13498259 (Version 2)
Quarter: 2019Q2

REPORT INFORMATION
  Report Type: Spontaneous
  Country: US (occurrence: US)
  Receive Date: 20170428
  Receipt Date: 20190625
  Transmission Date: 20190711
  Serious: Yes (Other)
  Sender: FDA-Public Use
  Company Number: US-INDIVIOR LIMITED-INDV-100713-2017

PATIENT
  Age: 19 Year
  Sex: Male

DRUGS (2)
  1. CANNABIS [Suspect]
     Active Substance: CANNABIS SATIVA SUBSP. INDICA TOP
     Indication: PRODUCT USED FOR UNKNOWN INDICATION
     Dosage: UNK
     Route: 055
  2. BUPRENORPHINE. [Suspect]
     Active Substance: BUPRENORPHINE
     Indication: PRODUCT USED FOR UNKNOWN INDICATION
     Dosage: UNK
     Route: 065

REACTIONS (11)
  - Pancreatitis acute [Unknown]
  - Delirium [Recovered/Resolved]
  - Status epilepticus [Recovered/Resolved]
  - Acute kidney injury [Unknown]
  - Agitation [Recovered/Resolved]
  - Clostridium difficile infection [Unknown]
  - Respiratory failure [Recovered/Resolved]
  - Drug abuse [Unknown]
  - Cardiomyopathy [Unknown]
  - Drug dependence [Unknown]
  - Sepsis [Recovered/Resolved]
